FAERS Safety Report 25817983 (Version 2)
Quarter: 2025Q3

REPORT INFORMATION
  Report Type: Spontaneous
  Country: EU (occurrence: EU)
  Receive Date: 20250918
  Receipt Date: 20250929
  Transmission Date: 20251021
  Serious: Yes (Life-Threatening, Hospitalization, Disabling)
  Sender: ELI LILLY AND COMPANY
  Company Number: None

PATIENT
  Age: 49 Year
  Sex: Male
  Weight: 127 kg

DRUGS (4)
  1. MOUNJARO [Suspect]
     Active Substance: TIRZEPATIDE
     Indication: Weight control
     Dosage: 7.5 UNK, WEEKLY (1/W)
     Route: 065
     Dates: start: 20250613, end: 20250904
  2. MOUNJARO [Suspect]
     Active Substance: TIRZEPATIDE
     Indication: Weight control
     Dosage: 7.5 UNK, WEEKLY (1/W)
     Route: 065
     Dates: start: 20250613, end: 20250904
  3. MOUNJARO [Suspect]
     Active Substance: TIRZEPATIDE
     Indication: Weight control
     Dosage: 7.5 UNK, WEEKLY (1/W)
     Route: 065
     Dates: start: 20250613, end: 20250904
  4. MOUNJARO [Suspect]
     Active Substance: TIRZEPATIDE
     Indication: Weight control
     Dosage: 7.5 UNK, WEEKLY (1/W)
     Route: 065
     Dates: start: 20250613, end: 20250904

REACTIONS (4)
  - Diarrhoea [Recovering/Resolving]
  - Vomiting [Recovering/Resolving]
  - Aortic thrombosis [Unknown]
  - Acidosis hyperchloraemic [Unknown]

NARRATIVE: CASE EVENT DATE: 20250830
